FAERS Safety Report 20545271 (Version 7)
Quarter: 2022Q4

REPORT INFORMATION
  Report Type: Spontaneous
  Country: US (occurrence: US)
  Receive Date: 20220303
  Receipt Date: 20221012
  Transmission Date: 20230113
  Serious: Yes (Hospitalization)
  Sender: FDA-Public Use
  Company Number: US-BIOGEN-2022BI01100438

PATIENT
  Sex: Female

DRUGS (1)
  1. TYSABRI [Suspect]
     Active Substance: NATALIZUMAB
     Indication: Multiple sclerosis
     Route: 050
     Dates: start: 20081125, end: 20211118

REACTIONS (13)
  - Pseudomonas infection [Not Recovered/Not Resolved]
  - Clostridial infection [Not Recovered/Not Resolved]
  - Wound infection bacterial [Not Recovered/Not Resolved]
  - Fall [Recovered/Resolved]
  - Multiple fractures [Unknown]
  - Tibia fracture [Not Recovered/Not Resolved]
  - Fibula fracture [Not Recovered/Not Resolved]
  - Wound [Not Recovered/Not Resolved]
  - Skin ulcer [Not Recovered/Not Resolved]
  - Bladder disorder [Not Recovered/Not Resolved]
  - Spinal column injury [Not Recovered/Not Resolved]
  - Decubitus ulcer [Not Recovered/Not Resolved]
  - Limb injury [Not Recovered/Not Resolved]
